FAERS Safety Report 10458872 (Version 1)
Quarter: 2014Q3

REPORT INFORMATION
  Report Type: Spontaneous
  Country: US (occurrence: US)
  Receive Date: 20140917
  Receipt Date: 20140917
  Transmission Date: 20150326
  Serious: Yes (Other)
  Sender: FDA-Public Use
  Company Number: US-009507513-1409USA004564

PATIENT
  Sex: Female

DRUGS (1)
  1. JANUVIA [Suspect]
     Active Substance: SITAGLIPTIN PHOSPHATE
     Dosage: STRENGTH100 MG,TABLET
     Route: 048

REACTIONS (6)
  - Musculoskeletal stiffness [Unknown]
  - Cerebrovascular accident [Unknown]
  - Limb discomfort [Unknown]
  - Amnesia [Unknown]
  - Balance disorder [Unknown]
  - Drug ineffective [Unknown]
